FAERS Safety Report 4403414-9 (Version None)
Quarter: 2004Q3

REPORT INFORMATION
  Report Type: 
  Country: None (occurrence: None)
  Receive Date: 20040715
  Receipt Date: 20040701
  Transmission Date: 20050211
  Serious: Yes (Hospitalization)
  Sender: FDA-Public Use
  Company Number: D01200402462

PATIENT
  Age: 55 Year
  Sex: Male
  Weight: 55.5 kg

DRUGS (1)
  1. CISPLATIN [Suspect]
     Indication: CARCINOMA
     Dosage: 100 MG/M2 OTHER - INTRAVENOUS NOS
     Route: 042
     Dates: start: 20040127, end: 20040127

REACTIONS (10)
  - DEHYDRATION [None]
  - DYSPHAGIA [None]
  - FISTULA [None]
  - GASTROINTESTINAL MOTILITY DISORDER [None]
  - ODYNOPHAGIA [None]
  - PHARYNGEAL OEDEMA [None]
  - PNEUMONIA ASPIRATION [None]
  - SOFT TISSUE DISORDER [None]
  - TREATMENT NONCOMPLIANCE [None]
  - WEIGHT DECREASED [None]
